FAERS Safety Report 20824970 (Version 2)
Quarter: 2022Q2

REPORT INFORMATION
  Report Type: Report from Study
  Country: DE (occurrence: DE)
  Receive Date: 20220513
  Receipt Date: 20220523
  Transmission Date: 20220721
  Serious: No
  Sender: FDA-Public Use
  Company Number: DE-CELGENE-DEU-20210901811

PATIENT
  Age: 33 Year
  Sex: Male
  Weight: 76 kg

DRUGS (2)
  1. OZANIMOD [Suspect]
     Active Substance: OZANIMOD
     Indication: Multiple sclerosis
     Dosage: .92 MILLIGRAM,0-1-0
     Route: 048
     Dates: start: 20210715
  2. OZANIMOD [Suspect]
     Active Substance: OZANIMOD
     Indication: Relapsing-remitting multiple sclerosis

REACTIONS (3)
  - Skin burning sensation [Recovering/Resolving]
  - Lymphopenia [Recovering/Resolving]
  - Dyspepsia [Recovering/Resolving]

NARRATIVE: CASE EVENT DATE: 20210809
